FAERS Safety Report 5444795-7 (Version None)
Quarter: 2007Q3

REPORT INFORMATION
  Report Type: 
  Country: None (occurrence: None)
  Receive Date: 20070906
  Receipt Date: 20070319
  Transmission Date: 20080115
  Serious: Yes (Hospitalization, Disabling, Other)
  Sender: FDA-Public Use
  Company Number: A0643697A

PATIENT
  Age: 74 Year
  Sex: Male

DRUGS (6)
  1. REQUIP [Suspect]
     Indication: DRUG USE FOR UNKNOWN INDICATION
     Dosage: 1MG THREE TIMES PER DAY
     Route: 048
  2. VALPROATE SODIUM [Concomitant]
  3. PROTONIX [Concomitant]
  4. CELEXA [Concomitant]
  5. WELLBUTRIN [Concomitant]
  6. BENZTROPINE [Concomitant]

REACTIONS (1)
  - UPPER GASTROINTESTINAL HAEMORRHAGE [None]
